FAERS Safety Report 11557487 (Version 1)
Quarter: 2015Q3

REPORT INFORMATION
  Report Type: Spontaneous
  Country: US (occurrence: US)
  Receive Date: 20150926
  Receipt Date: 20150926
  Transmission Date: 20151125
  Serious: No
  Sender: FDA-Public Use
  Company Number: US-009507513-1509USA008950

PATIENT
  Age: 59 Year
  Sex: Female

DRUGS (2)
  1. CHOLECALCIFEROL [Concomitant]
     Active Substance: CHOLECALCIFEROL
     Dosage: UNK
  2. ZETIA [Suspect]
     Active Substance: EZETIMIBE
     Indication: BLOOD CHOLESTEROL ABNORMAL
     Dosage: 10 MG, QD
     Route: 048
     Dates: start: 201508, end: 20150915

REACTIONS (5)
  - Malaise [Unknown]
  - Pain in extremity [Unknown]
  - Fatigue [Unknown]
  - Chest pain [Unknown]
  - Myalgia [Unknown]

NARRATIVE: CASE EVENT DATE: 2015
